FAERS Safety Report 4915125-1 (Version None)
Quarter: 2006Q1

REPORT INFORMATION
  Report Type: 
  Country: None (occurrence: None)
  Receive Date: 20060217
  Receipt Date: 20051007
  Transmission Date: 20060701
  Serious: Yes (Life-Threatening, Other)
  Sender: FDA-Public Use
  Company Number: 200519003GDDC

PATIENT
  Age: 63 Year
  Sex: Female
  Weight: 102.5 kg

DRUGS (5)
  1. TAXOTERE [Suspect]
     Indication: BREAST CANCER
     Route: 042
     Dates: start: 20040102, end: 20040426
  2. FARMORUBICIN [Suspect]
     Indication: BREAST CANCER
     Route: 042
     Dates: start: 20040312, end: 20040426
  3. ANASTROZOLE [Suspect]
     Indication: BREAST CANCER
     Dates: start: 20040923
  4. COZAAR [Concomitant]
  5. ANASTROZOL [Concomitant]

REACTIONS (3)
  - MYELOFIBROSIS [None]
  - PULMONARY EMBOLISM [None]
  - THROMBOCYTHAEMIA [None]
